FAERS Safety Report 8388422-8 (Version None)
Quarter: 2012Q2

REPORT INFORMATION
  Report Type: 
  Country: None (occurrence: None)
  Receive Date: 20120525
  Receipt Date: 20120516
  Transmission Date: 20120825
  Serious: Yes (Other)
  Sender: FDA-Public Use
  Company Number: US-ASTRAZENECA-2012SE27911

PATIENT
  Age: 51 Year
  Sex: Male

DRUGS (1)
  1. SYMBICORT [Suspect]
     Route: 055
     Dates: start: 20040901

REACTIONS (1)
  - BACK INJURY [None]
